FAERS Safety Report 9580851 (Version 1)
Quarter: 2013Q4

REPORT INFORMATION
  Report Type: Spontaneous
  Country: US (occurrence: None)
  Receive Date: 20131001
  Receipt Date: 20131001
  Transmission Date: 20140711
  Serious: Yes (Disabling)
  Sender: FDA-Public Use
  Company Number: None

PATIENT
  Age: 83 Year
  Sex: Male
  Weight: 86.18 kg

DRUGS (2)
  1. TOUIAZ ER [Suspect]
     Indication: URINARY INCONTINENCE
     Dosage: 4 MG, 1 PILL, ONCE DAILY BY MOUTH
     Route: 048
     Dates: start: 20130826, end: 20130827
  2. PROBIOTIC [Concomitant]

REACTIONS (3)
  - Constipation [None]
  - Hypersensitivity [None]
  - Unevaluable event [None]
